FAERS Safety Report 7527900-8 (Version None)
Quarter: 2011Q2

REPORT INFORMATION
  Report Type: 
  Country: None (occurrence: None)
  Receive Date: 20110607
  Receipt Date: 20030208
  Transmission Date: 20111010
  Serious: Yes (Death)
  Sender: FDA-Public Use
  Company Number: PHBS2003NZ14652

PATIENT
  Sex: Male

DRUGS (5)
  1. CLOZARIL [Suspect]
     Indication: SCHIZOPHRENIA
     Route: 048
     Dates: start: 19961003, end: 20030208
  2. LEVOTHYROXINE SODIUM [Concomitant]
  3. BENZTROPINE MESYLATE [Concomitant]
  4. LOXAPINE HCL [Concomitant]
  5. VALPROATE SODIUM [Concomitant]

REACTIONS (1)
  - DEATH [None]
